FAERS Safety Report 5336898-2 (Version None)
Quarter: 2007Q2

REPORT INFORMATION
  Report Type: 
  Country: None (occurrence: None)
  Receive Date: 20070524
  Receipt Date: 20070524
  Transmission Date: 20071010
  Serious: Yes (Hospitalization)
  Sender: FDA-Public Use
  Company Number: None

PATIENT
  Sex: Female
  Weight: 71.8 kg

DRUGS (3)
  1. CYTARABINE [Suspect]
     Dosage: 177 MG
  2. DAUNORUBICIN HCL [Suspect]
     Dosage: 80 MG
  3. MYLOTARG [Suspect]
     Dosage: 11 MG

REACTIONS (2)
  - TORSADE DE POINTES [None]
  - VENTRICULAR FIBRILLATION [None]
